FAERS Safety Report 17024717 (Version 8)
Quarter: 2020Q2

REPORT INFORMATION
  Report Type: Spontaneous
  Country: PT (occurrence: PT)
  Receive Date: 20191113
  Receipt Date: 20200620
  Transmission Date: 20200713
  Serious: Yes (Hospitalization, Other)
  Sender: FDA-Public Use
  Company Number: PT-AUROBINDO-AUR-APL-2019-071517

PATIENT
  Age: 74 Year
  Sex: Male

DRUGS (3)
  1. AMOXICILLIN. [Suspect]
     Active Substance: AMOXICILLIN
     Indication: ANTIBIOTIC THERAPY
     Dosage: UNK
     Route: 065
  2. WARFARIN SODIUM. [Interacting]
     Active Substance: WARFARIN SODIUM
     Indication: ANTICOAGULANT THERAPY
     Dosage: 30 MILLIGRAM, EVERY WEEK
     Route: 048
  3. AMOXICILLIN+CLAVULANIC ACID [Interacting]
     Active Substance: AMOXICILLIN\CLAVULANIC ACID
     Indication: ANTIBIOTIC THERAPY
     Dosage: UNK
     Route: 065

REACTIONS (15)
  - Asthenia [Recovered/Resolved]
  - Hypochromic anaemia [Unknown]
  - Abdominal wall haematoma [Unknown]
  - Intra-abdominal haematoma [Recovered/Resolved]
  - Hyperlactacidaemia [Unknown]
  - Inflammatory marker increased [Unknown]
  - Cough [Unknown]
  - Renal impairment [Recovered/Resolved]
  - International normalised ratio increased [Recovered/Resolved]
  - Nausea [Recovered/Resolved]
  - Glomerular filtration rate decreased [Recovered/Resolved]
  - Abdominal pain upper [Recovered/Resolved]
  - Iron deficiency anaemia [Recovered/Resolved]
  - Abdominal pain [Unknown]
  - Drug interaction [Recovered/Resolved]
